FAERS Safety Report 4721469-9 (Version None)
Quarter: 2005Q3

REPORT INFORMATION
  Report Type: 
  Country: None (occurrence: None)
  Receive Date: 20050721
  Receipt Date: 20040928
  Transmission Date: 20060218
  Serious: Yes (Other)
  Sender: FDA-Public Use
  Company Number: US-BRISTOL-MYERS SQUIBB COMPANY-12713897

PATIENT
  Sex: Male

DRUGS (3)
  1. COUMADIN [Suspect]
     Dates: start: 20040101
  2. BEXTRA [Suspect]
     Dates: start: 20040101
  3. CARDIAC MEDICATIONS [Concomitant]

REACTIONS (3)
  - DRUG INTERACTION [None]
  - GASTROINTESTINAL HAEMORRHAGE [None]
  - INTERNATIONAL NORMALISED RATIO INCREASED [None]
